FAERS Safety Report 17509952 (Version 2)
Quarter: 2021Q1

REPORT INFORMATION
  Report Type: Report from Study
  Country: US (occurrence: US)
  Receive Date: 20200306
  Receipt Date: 20210303
  Transmission Date: 20210419
  Serious: Yes (Other)
  Sender: FDA-Public Use
  Company Number: US-TAKEDA-2020TUS012645

PATIENT
  Sex: Female
  Weight: 100.7 kg

DRUGS (9)
  1. TYLENOL [Concomitant]
     Active Substance: ACETAMINOPHEN
     Indication: PAIN
     Dosage: UNK
     Route: 048
     Dates: start: 20180829, end: 20190215
  2. GABAPENTIN. [Concomitant]
     Active Substance: GABAPENTIN
     Indication: MUSCULAR WEAKNESS
     Dosage: UNK UNK, QD
     Dates: start: 20180829, end: 20181002
  3. 6?MP [Concomitant]
     Active Substance: MERCAPTOPURINE
     Indication: COLITIS ULCERATIVE
     Dosage: UNK UNK, QD
     Dates: start: 20180828, end: 20181002
  4. CAFFEINE. [Concomitant]
     Active Substance: CAFFEINE
     Dosage: UNK, MONTHLY
     Route: 048
     Dates: start: 20180829, end: 20181230
  5. CAFFEINE. [Concomitant]
     Active Substance: CAFFEINE
     Dosage: UNK, 1/WEEK
     Dates: start: 20190102, end: 20190527
  6. BACLOFEN. [Concomitant]
     Active Substance: BACLOFEN
     Indication: MUSCLE DISORDER
     Dosage: UNK
     Dates: start: 20180829, end: 20181002
  7. VEDOLIZUMAB [Suspect]
     Active Substance: VEDOLIZUMAB
     Indication: COLITIS ULCERATIVE
     Dosage: 300 MILLIGRAM
     Route: 042
     Dates: start: 20180515, end: 20190315
  8. CALMOSEPTINE                       /00156514/ [Concomitant]
     Indication: HIDRADENITIS
     Dosage: UNK
     Route: 061
     Dates: start: 20180829, end: 20190527
  9. BENADRYL [Concomitant]
     Active Substance: DIPHENHYDRAMINE HYDROCHLORIDE
     Indication: HYPERSENSITIVITY
     Dosage: UNK
     Route: 048
     Dates: start: 20180829, end: 20181020

REACTIONS (6)
  - Sinusitis [Unknown]
  - Bladder discomfort [Unknown]
  - Muscle tightness [Unknown]
  - Abscess limb [Unknown]
  - Muscle spasms [Unknown]
  - Pregnancy [Recovered/Resolved]
